FAERS Safety Report 24284058 (Version 1)
Quarter: 2024Q3

REPORT INFORMATION
  Report Type: Spontaneous
  Country: MX (occurrence: MX)
  Receive Date: 20240905
  Receipt Date: 20240905
  Transmission Date: 20241016
  Serious: Yes (Hospitalization)
  Sender: NOVO NORDISK
  Company Number: MX-NOVOPROD-1276938

PATIENT
  Sex: Female

DRUGS (1)
  1. RYBELSUS [Suspect]
     Active Substance: SEMAGLUTIDE
     Indication: Product used for unknown indication
     Dosage: UNK

REACTIONS (7)
  - Drug-induced liver injury [Unknown]
  - Menstruation delayed [Unknown]
  - Food aversion [Unknown]
  - Oral candidiasis [Unknown]
  - Liver function test abnormal [Unknown]
  - Blood glucose decreased [Unknown]
  - Weight decreased [Unknown]
